FAERS Safety Report 6326507-8 (Version None)
Quarter: 2009Q3

REPORT INFORMATION
  Report Type: 
  Country: None (occurrence: None)
  Receive Date: 20090821
  Receipt Date: 20090810
  Transmission Date: 20100115
  Serious: Yes (Other)
  Sender: FDA-Public Use
  Company Number: ADR12792009

PATIENT
  Age: 54 Year
  Sex: Male

DRUGS (12)
  1. RANITIDINE [Suspect]
     Dosage: 150 MG ORAL
     Route: 048
  2. DEXAMETHASONE 4MG TAB [Concomitant]
  3. KETOPROFEN (100MG) [Concomitant]
  4. MIDAZOLAM HCL [Concomitant]
  5. OXYGEN (UNKNOWN) [Concomitant]
  6. PROPOFOL (1 DF) [Concomitant]
  7. REMIFENTANIL (1 DF) [Concomitant]
  8. TRAMADOL (100 MG) [Concomitant]
  9. CHLORPHENIRAMINE (4 MG) [Concomitant]
  10. FELODIPINE (UNKNOWN) [Concomitant]
  11. IBRUPROFEN (800 MG) [Concomitant]
  12. PARACETAMOL (1G) [Concomitant]

REACTIONS (4)
  - DIARRHOEA [None]
  - HYPOTENSION [None]
  - PO2 DECREASED [None]
  - VOMITING [None]
